FAERS Safety Report 16660499 (Version 1)
Quarter: 2019Q3

REPORT INFORMATION
  Report Type: Report from Study
  Country: None (occurrence: GT)
  Receive Date: 20190802
  Receipt Date: 20190802
  Transmission Date: 20191004
  Serious: Yes (Other)
  Sender: FDA-Public Use
  Company Number: GT-ABBVIE-19K-069-2873610-00

PATIENT
  Sex: Male
  Weight: 88.08 kg

DRUGS (3)
  1. ZEMPLAR [Suspect]
     Active Substance: PARICALCITOL
     Indication: HYPERPARATHYROIDISM SECONDARY
     Route: 042
     Dates: start: 20160802
  2. IRBESARTAN. [Concomitant]
     Active Substance: IRBESARTAN
     Indication: HYPERTENSION
     Route: 048
  3. ERYTHROPOIETIN [Concomitant]
     Active Substance: ERYTHROPOIETIN
     Indication: HAEMOGLOBIN
     Route: 042
     Dates: start: 2006

REACTIONS (2)
  - Inguinal hernia [Recovering/Resolving]
  - Blood phosphorus increased [Recovering/Resolving]

NARRATIVE: CASE EVENT DATE: 2019
